FAERS Safety Report 21750369 (Version 1)
Quarter: 2022Q4

REPORT INFORMATION
  Report Type: Spontaneous
  Country: None (occurrence: BE)
  Receive Date: 20221219
  Receipt Date: 20221219
  Transmission Date: 20230113
  Serious: Yes (Life-Threatening, Other)
  Sender: FDA-Public Use
  Company Number: BE-B.Braun Medical Inc.-2135971

PATIENT
  Age: 18 Year
  Sex: Female
  Weight: 60.7 kg

DRUGS (14)
  1. ACETAMINOPHEN [Suspect]
     Active Substance: ACETAMINOPHEN
  2. CANCIDAS [Suspect]
     Active Substance: CASPOFUNGIN ACETATE
  3. ALIZAPRIDE HYDROCHLORIDE [Suspect]
     Active Substance: ALIZAPRIDE HYDROCHLORIDE
  4. CRESEMBA [Suspect]
     Active Substance: ISAVUCONAZONIUM SULFATE
  5. VANCOMYCIN [Suspect]
     Active Substance: VANCOMYCIN
  6. ALBUREX [Suspect]
     Active Substance: ALBUMIN HUMAN
  7. AMBISOME [Suspect]
     Active Substance: AMPHOTERICIN B
  8. OMEPRAZOLE [Suspect]
     Active Substance: OMEPRAZOLE
  9. ZOVIRAX [Suspect]
     Active Substance: ACYCLOVIR
  10. SULFAMETHOXAZOLE\TRIMETHOPRIM [Suspect]
     Active Substance: SULFAMETHOXAZOLE\TRIMETHOPRIM
  11. MEROPENEM [Suspect]
     Active Substance: MEROPENEM
  12. PHOSPHATE (SODIUM PHOSPHATE, DIBASIC\SODIUM PHOSPHATE, MONOBASIC) [Suspect]
     Active Substance: SODIUM PHOSPHATE, DIBASIC\SODIUM PHOSPHATE, MONOBASIC
  13. POLYETHYLENE GLYCOL 4000 [Suspect]
     Active Substance: POLYETHYLENE GLYCOL 4000
  14. MORPHINE [Suspect]
     Active Substance: MORPHINE

REACTIONS (6)
  - Chest pain [Recovered/Resolved]
  - Nervous system disorder [Recovered/Resolved]
  - Hypoxia [Recovered/Resolved]
  - Bronchospasm [Recovered/Resolved]
  - Joint stiffness [Recovered/Resolved]
  - Loss of consciousness [Recovered/Resolved]
